FAERS Safety Report 8294448-5 (Version None)
Quarter: 2012Q2

REPORT INFORMATION
  Report Type: 
  Country: None (occurrence: None)
  Receive Date: 20120418
  Receipt Date: 20120412
  Transmission Date: 20120825
  Serious: Yes (Other)
  Sender: FDA-Public Use
  Company Number: PHHY2012BR031336

PATIENT
  Sex: Female

DRUGS (2)
  1. EQUILID [Concomitant]
  2. GILENYA [Suspect]
     Dosage: 0.5 MG, UNK
     Route: 048

REACTIONS (4)
  - TONGUE DISORDER [None]
  - LIMB DEFORMITY [None]
  - MOVEMENT DISORDER [None]
  - FEELING COLD [None]
